FAERS Safety Report 12050468 (Version 1)
Quarter: 2016Q1

REPORT INFORMATION
  Report Type: Report from Study
  Country: US (occurrence: US)
  Receive Date: 20160208
  Receipt Date: 20160208
  Transmission Date: 20160526
  Serious: No
  Sender: FDA-Public Use
  Company Number: US-ABBVIE-15P-163-1393031-00

PATIENT
  Age: 88 Year
  Sex: Male

DRUGS (1)
  1. HUMIRA [Suspect]
     Active Substance: ADALIMUMAB
     Indication: PSORIASIS
     Route: 065
     Dates: start: 20141211, end: 20150528

REACTIONS (7)
  - Nail disorder [Not Recovered/Not Resolved]
  - Pruritus [Not Recovered/Not Resolved]
  - Weight increased [Unknown]
  - Rash macular [Unknown]
  - Dermatitis acneiform [Not Recovered/Not Resolved]
  - Onychomycosis [Unknown]
  - Fungal infection [Unknown]

NARRATIVE: CASE EVENT DATE: 20150315
